FAERS Safety Report 14259683 (Version 2)
Quarter: 2019Q3

REPORT INFORMATION
  Report Type: Report from Study
  Country: SE (occurrence: SE)
  Receive Date: 20171207
  Receipt Date: 20190719
  Transmission Date: 20191004
  Serious: No
  Sender: FDA-Public Use
  Company Number: SE-IPSEN BIOPHARMACEUTICALS, INC.-2017-14843

PATIENT
  Age: 3 Year
  Sex: Female
  Weight: 10.1 kg

DRUGS (4)
  1. INCRELEX [Suspect]
     Active Substance: MECASERMIN
     Route: 058
     Dates: start: 20160916, end: 20161002
  2. INCRELEX [Suspect]
     Active Substance: MECASERMIN
     Indication: PRIMARY INSULIN LIKE GROWTH FACTOR-1 DEFICIENCY
     Route: 058
     Dates: start: 20161003
  3. INCRELEX [Suspect]
     Active Substance: MECASERMIN
     Route: 058
  4. INCRELEX [Suspect]
     Active Substance: MECASERMIN
     Route: 058
     Dates: start: 20160901, end: 20160915

REACTIONS (5)
  - Tonsillar hypertrophy [Recovered/Resolved]
  - Headache [Recovered/Resolved]
  - Upper respiratory tract infection [Recovered/Resolved]
  - Blood iron decreased [Recovered/Resolved]
  - Otitis media [Recovered/Resolved]

NARRATIVE: CASE EVENT DATE: 20160930
